FAERS Safety Report 7707869-3 (Version None)
Quarter: 2011Q3

REPORT INFORMATION
  Report Type: 
  Country: None (occurrence: None)
  Receive Date: 20110824
  Receipt Date: 20110815
  Transmission Date: 20111222
  Serious: Yes (Other)
  Sender: FDA-Public Use
  Company Number: US-ASTRAZENECA-2010SE61287

PATIENT
  Age: 53 Year
  Sex: Female

DRUGS (6)
  1. NEXIUM [Suspect]
     Route: 048
  2. SEROQUEL [Suspect]
     Route: 048
  3. SEROQUEL [Suspect]
     Indication: BIPOLAR DISORDER
     Route: 048
     Dates: start: 20060101
  4. SEROQUEL [Suspect]
     Indication: DEPRESSION
     Route: 048
     Dates: start: 20060101
  5. SEROQUEL [Suspect]
     Route: 048
  6. CYMBALTA [Concomitant]
     Indication: ANXIETY
     Dosage: HS

REACTIONS (9)
  - CONFUSIONAL STATE [None]
  - WRONG TECHNIQUE IN DRUG USAGE PROCESS [None]
  - WEIGHT DECREASED [None]
  - THERAPEUTIC RESPONSE UNEXPECTED [None]
  - DRUG DOSE OMISSION [None]
  - GASTRIC CANCER [None]
  - INSOMNIA [None]
  - WEIGHT INCREASED [None]
  - ABDOMINAL PAIN UPPER [None]
